FAERS Safety Report 4663540-6 (Version None)
Quarter: 2005Q2

REPORT INFORMATION
  Report Type: 
  Country: None (occurrence: None)
  Receive Date: 20050517
  Receipt Date: 20050510
  Transmission Date: 20051028
  Serious: Yes (Other)
  Sender: FDA-Public Use
  Company Number: GB-GLAXOSMITHKLINE-B0380438A

PATIENT
  Age: 61 Year
  Sex: Female

DRUGS (4)
  1. CO-AMOXICLAV [Suspect]
     Indication: DIVERTICULITIS
     Route: 048
     Dates: start: 20050228, end: 20050301
  2. ATORVASTATIN CALCIUM [Concomitant]
     Dosage: 20MG PER DAY
     Route: 065
     Dates: start: 20021103
  3. LANSOPRAZOLE [Concomitant]
     Dosage: 30MG PER DAY
     Route: 065
     Dates: start: 20021108
  4. DICLOFENAC SODIUM [Concomitant]
     Dosage: 75MG TWICE PER DAY
     Route: 065
     Dates: start: 20020809

REACTIONS (4)
  - BLOOD ALKALINE PHOSPHATASE INCREASED [None]
  - GAMMA-GLUTAMYLTRANSFERASE INCREASED [None]
  - LIVER FUNCTION TEST ABNORMAL [None]
  - NAUSEA [None]
